FAERS Safety Report 7153221-1 (Version None)
Quarter: 2010Q4

REPORT INFORMATION
  Report Type: 
  Country: None (occurrence: None)
  Receive Date: 20101130
  Receipt Date: 20101103
  Transmission Date: 20110411
  Serious: Yes (Life-Threatening)
  Sender: FDA-Public Use
  Company Number: 54973

PATIENT
  Age: 20 Month
  Sex: Female
  Weight: 10.4327 kg

DRUGS (1)
  1. HYLAND'S TEETHING TABLETS [Suspect]
     Indication: TEETHING
     Dosage: 1-3 TABS BID EVRYOTHRDY

REACTIONS (3)
  - GRAND MAL CONVULSION [None]
  - LEUKOARAIOSIS [None]
  - PETIT MAL EPILEPSY [None]
